FAERS Safety Report 7942542-8 (Version None)
Quarter: 2011Q4

REPORT INFORMATION
  Report Type: 
  Country: None (occurrence: None)
  Receive Date: 20111128
  Receipt Date: 20111116
  Transmission Date: 20120403
  Serious: Yes (Other)
  Sender: FDA-Public Use
  Company Number: GB-GLAXOSMITHKLINE-B0763635A

PATIENT
  Age: 25 Year
  Sex: Female

DRUGS (4)
  1. FLUTICASONE PROPIONATE/SALMETEROL [Suspect]
     Indication: PRODUCT USED FOR UNKNOWN INDICATION
     Dosage: 1000MCG PER DAY
     Route: 055
  2. TIOTROPIUM [Concomitant]
     Dosage: 18MCG PER DAY
  3. MONTELUKAST SODIUM [Concomitant]
     Dosage: 10MCG PER DAY
  4. ALBUTEROL SULFATE AUTOHALER [Concomitant]
     Dosage: 100MCG AS REQUIRED

REACTIONS (2)
  - DRUG INEFFECTIVE [None]
  - ASTHMA [None]
